FAERS Safety Report 17903818 (Version 1)
Quarter: 2020Q2

REPORT INFORMATION
  Report Type: Report from Study
  Country: US (occurrence: US)
  Receive Date: 20200617
  Receipt Date: 20200617
  Transmission Date: 20200714
  Serious: Yes (Hospitalization, Other)
  Sender: FDA-Public Use
  Company Number: US-AUROBINDO-AUR-APL-2020-028941

PATIENT
  Sex: Male
  Weight: 1.2 kg

DRUGS (2)
  1. AMIODARONE HYDROCHLORIDE. [Suspect]
     Active Substance: AMIODARONE HYDROCHLORIDE
     Indication: TACHYCARDIA FOETAL
     Dosage: UNK
     Route: 065
  2. FLECAINIDE [Suspect]
     Active Substance: FLECAINIDE
     Indication: TACHYCARDIA FOETAL
     Dosage: UNK
     Route: 065

REACTIONS (9)
  - Supraventricular tachycardia [Unknown]
  - Cardiopulmonary failure [Unknown]
  - Hydrops foetalis [Unknown]
  - Treatment failure [Unknown]
  - Multiple organ dysfunction syndrome [Unknown]
  - Low birth weight baby [Unknown]
  - Premature baby [Unknown]
  - Ventricular dysfunction [Unknown]
  - Foetal exposure during pregnancy [Unknown]
